FAERS Safety Report 5683839-4 (Version None)
Quarter: 2008Q1

REPORT INFORMATION
  Report Type: 
  Country: None (occurrence: None)
  Receive Date: 20080326
  Receipt Date: 20070926
  Transmission Date: 20080703
  Serious: Yes (Hospitalization)
  Sender: FDA-Public Use
  Company Number: 6037078

PATIENT
  Age: 79 Year
  Sex: Male

DRUGS (8)
  1. METFORMIN HCL [Suspect]
     Indication: DIABETES MELLITUS
     Dosage: 3000 MG (1000 MG, 3 IN 1 D) ORAL
     Route: 048
     Dates: start: 20070619, end: 20070731
  2. LOSARTAN POTASSIUM AND HYDROCHLOROTHIAZIDE [Concomitant]
  3. DETENSIEL         (BISOPROLOL FUMARATE) [Concomitant]
     Dosage: 10MG
  4. LERCANIDIPINE [Concomitant]
  5. KARDEGIC                        (ACETYLSALICYLATE LYSINE) [Concomitant]
     Dosage: 160MG POWDER FOR ORAL SOLUTION
     Route: 048
  6. PROSCAR [Concomitant]
  7. XATRAL                 (ALFUZOSIN) [Concomitant]
  8. NOCTRAN                (CLORAZEPATE DIPOTASSIUM) [Concomitant]

REACTIONS (1)
  - DRUG HYPERSENSITIVITY [None]
